FAERS Safety Report 7216226-8 (Version None)
Quarter: 2011Q1

REPORT INFORMATION
  Report Type: 
  Country: None (occurrence: None)
  Receive Date: 20110107
  Receipt Date: 20110104
  Transmission Date: 20110831
  Serious: Yes (Hospitalization)
  Sender: FDA-Public Use
  Company Number: JP-ABBOTT-10P-087-0649119-00

PATIENT
  Sex: Male
  Weight: 54 kg

DRUGS (16)
  1. ISONIAZID [Concomitant]
     Indication: ANTIBIOTIC PROPHYLAXIS
     Route: 048
     Dates: start: 20090718, end: 20100109
  2. VITAMIN B COMPLEX [Concomitant]
     Indication: PROPHYLAXIS
     Route: 048
     Dates: start: 20090718
  3. SULFAMETHOXAZOLE AND TRIMETHOPRIM [Concomitant]
     Indication: PROPHYLAXIS
     Route: 048
     Dates: start: 20090718
  4. LANSOPRAZOLE [Concomitant]
     Indication: GASTRITIS PROPHYLAXIS
     Route: 048
     Dates: start: 20090718
  5. PREDNISOLONE [Suspect]
     Indication: RHEUMATOID ARTHRITIS
     Route: 048
     Dates: start: 20090718, end: 20091128
  6. REBAMIPIDE [Concomitant]
     Indication: GASTRITIS PROPHYLAXIS
     Route: 048
     Dates: start: 20090718
  7. HUMIRA [Suspect]
     Indication: RHEUMATOID ARTHRITIS
     Route: 058
     Dates: start: 20091017, end: 20100615
  8. FOLIC ACID [Concomitant]
     Indication: ADVERSE DRUG REACTION
  9. VITAMIN B COMPLEX [Concomitant]
     Indication: ADVERSE DRUG REACTION
  10. FOLIC ACID [Concomitant]
     Indication: PROPHYLAXIS
     Route: 048
     Dates: start: 20090718
  11. ALENDRONATE SODIUM [Concomitant]
     Indication: OSTEOPOROSIS
     Route: 048
     Dates: start: 20090718
  12. METHOTREXATE [Suspect]
     Indication: RHEUMATOID ARTHRITIS
     Dosage: 12 MG WEEKLY
     Route: 048
     Dates: start: 20090808
  13. PREDNISOLONE [Suspect]
     Route: 048
     Dates: start: 20091219
  14. SULFAMETHOXAZOLE AND TRIMETHOPRIM [Concomitant]
     Indication: PNEUMONIA
  15. ALFACALCIDOL [Concomitant]
     Indication: OSTEOPOROSIS
     Route: 048
     Dates: start: 20090613
  16. LOXOPROFEN SODIUM HYDRATE [Concomitant]
     Indication: RHEUMATOID ARTHRITIS
     Route: 048
     Dates: start: 20090718

REACTIONS (6)
  - TUBERCULOSIS [None]
  - JOINT STIFFNESS [None]
  - ARTHRALGIA [None]
  - BACK PAIN [None]
  - PLEURAL FIBROSIS [None]
  - COMPUTERISED TOMOGRAM ABNORMAL [None]
